FAERS Safety Report 4342425-9 (Version None)
Quarter: 2004Q2

REPORT INFORMATION
  Report Type: 
  Country: None (occurrence: None)
  Receive Date: 20040420
  Receipt Date: 20040420
  Transmission Date: 20050107
  Serious: Yes (Life-Threatening)
  Sender: FDA-Public Use
  Company Number: None

PATIENT
  Age: 63 Year
  Sex: Female
  Weight: 62.5964 kg

DRUGS (13)
  1. REMICADE [Suspect]
     Indication: RHEUMATOID ARTHRITIS
     Dosage: 6 MG/KG  Q 6WKS IV [PRIOR TO 2000 WHEN SHE STARTED WITH US DON'T HAVE DATE]
     Route: 042
     Dates: end: 20000101
  2. PREDNISONE [Concomitant]
  3. PLAQUENIL [Concomitant]
  4. ZANTAC [Concomitant]
  5. METHOTREXATE [Concomitant]
  6. BEXTRA [Concomitant]
  7. HYLAND [Concomitant]
  8. ZETIA [Concomitant]
  9. TOPRAL [Concomitant]
  10. FLEXERIL [Concomitant]
  11. HYZAAR [Concomitant]
  12. TYLENOL W/ CODEINE NO. 3 [Concomitant]
  13. METHIMAZOLE [Concomitant]

REACTIONS (2)
  - ADENOCARCINOMA [None]
  - MALIGNANT PLEURAL EFFUSION [None]
